FAERS Safety Report 23051484 (Version 5)
Quarter: 2023Q4

REPORT INFORMATION
  Report Type: Spontaneous
  Country: JP (occurrence: JP)
  Receive Date: 20231010
  Receipt Date: 20231229
  Transmission Date: 20240109
  Serious: Yes (Other)
  Sender: FDA-Public Use
  Company Number: None

PATIENT

DRUGS (4)
  1. DAPRODUSTAT [Suspect]
     Active Substance: DAPRODUSTAT
     Indication: Nephrogenic anaemia
     Dosage: 4 MG, 1D
     Route: 048
     Dates: start: 20230306, end: 20230320
  2. DARBEPOETIN ALFA [Concomitant]
     Active Substance: DARBEPOETIN ALFA
     Indication: Nephrogenic anaemia
     Dosage: 10 UG, USED EVERY FRIDAY ONLY
     Route: 010
     Dates: start: 20230113, end: 20230220
  3. MAXACALCITOL [Concomitant]
     Active Substance: MAXACALCITOL
     Dosage: 2.5 ?G, ADMINISTERED EVERY MONDAY, WEDNESDAY AND FRIDAY
     Route: 010
     Dates: start: 20230113
  4. Fesin [Concomitant]
     Dosage: 1 DF, DOSE: 1A (AMPOULE), ADMINISTERED EVERY FRIDAY ONLY
     Route: 010
     Dates: start: 20230113, end: 20230320

REACTIONS (1)
  - Haemoglobin increased [Recovered/Resolved]

NARRATIVE: CASE EVENT DATE: 20230320
